FAERS Safety Report 23445541 (Version 1)
Quarter: 2024Q1

REPORT INFORMATION
  Report Type: Spontaneous
  Country: DE (occurrence: DE)
  Receive Date: 20240126
  Receipt Date: 20240126
  Transmission Date: 20240410
  Serious: Yes (Hospitalization, Other)
  Sender: FDA-Public Use
  Company Number: DE-EPICPHARMA-DE-2024EPCLIT00126

PATIENT
  Age: 52 Year
  Sex: Male

DRUGS (2)
  1. HALOPERIDOL LACTATE [Suspect]
     Active Substance: HALOPERIDOL LACTATE
     Indication: Schizophrenia
     Route: 065
  2. ARIPIPRAZOLE [Suspect]
     Active Substance: ARIPIPRAZOLE
     Indication: Schizophrenia
     Route: 065

REACTIONS (3)
  - Psychotic symptom [Recovered/Resolved]
  - Condition aggravated [Recovered/Resolved]
  - Drug withdrawal syndrome [Unknown]
